FAERS Safety Report 23517576 (Version 3)
Quarter: 2024Q1

REPORT INFORMATION
  Report Type: Other
  Country: DE (occurrence: None)
  Receive Date: 20240213
  Receipt Date: 20240229
  Transmission Date: 20240410
  Serious: No
  Sender: FDA-Public Use
  Company Number: DE-ROCHE-3507146

PATIENT
  Age: 25 Year
  Sex: Male

DRUGS (2)
  1. OCREVUS [Suspect]
     Active Substance: OCRELIZUMAB
     Indication: Multiple sclerosis
     Dosage: MOST RECENT DOSE (PRIOR TO EVENT): 09/AUG/2023, 600MG
     Route: 042
     Dates: start: 20200728
  2. CLADRIBINE [Concomitant]
     Active Substance: CLADRIBINE
     Dates: start: 20190904, end: 201910

REACTIONS (3)
  - Pneumonia [Recovered/Resolved]
  - White blood cell count decreased [Unknown]
  - Rash [Recovered/Resolved]

NARRATIVE: CASE EVENT DATE: 20231101
